FAERS Safety Report 5622982-2 (Version None)
Quarter: 2008Q1

REPORT INFORMATION
  Report Type: 
  Country: None (occurrence: None)
  Receive Date: 20080212
  Receipt Date: 20080201
  Transmission Date: 20080703
  Serious: Yes (Other)
  Sender: FDA-Public Use
  Company Number: US-ASTRAZENECA-2006UW07766

PATIENT
  Age: 14343 Day
  Sex: Female
  Weight: 48.6 kg

DRUGS (3)
  1. SEROQUEL [Suspect]
     Indication: DEPRESSION
     Dosage: 200 MG - 900 MG
     Route: 048
     Dates: start: 20020529, end: 20070531
  2. ZYPREXA [Concomitant]
     Dates: start: 20010105, end: 20010108
  3. ZYPREXA [Concomitant]
     Dates: start: 20050302

REACTIONS (3)
  - DIABETES MELLITUS [None]
  - LOSS OF CONSCIOUSNESS [None]
  - PANCREATITIS [None]
